APPROVED DRUG PRODUCT: TPOXX
Active Ingredient: TECOVIRIMAT
Strength: 200MG
Dosage Form/Route: CAPSULE;ORAL
Application: N208627 | Product #001
Applicant: SIGA TECHNOLOGIES INC
Approved: Jul 13, 2018 | RLD: Yes | RS: Yes | Type: RX

PATENTS:
Patent 7737168 | Expires: Sep 4, 2031
Patent 11890270 | Expires: Aug 8, 2032
Patent 9339466 | Expires: Mar 23, 2031
Patent 12433868 | Expires: Mar 23, 2031
Patent 8039504 | Expires: Jul 23, 2027